FAERS Safety Report 4848852-5 (Version None)
Quarter: 2005Q4

REPORT INFORMATION
  Report Type: 
  Country: None (occurrence: None)
  Receive Date: 20051121
  Receipt Date: 20050809
  Transmission Date: 20060501
  Serious: Yes (Hospitalization)
  Sender: FDA-Public Use
  Company Number: 05P-163-0307918-00

PATIENT
  Age: 80 Year
  Sex: Female

DRUGS (4)
  1. DEPAKOTE ER [Suspect]
     Indication: DYSKINESIA
     Dosage: 500 MG, PER ORAL
     Route: 048
     Dates: start: 20050501, end: 20050701
  2. GLUCOPHAGE [Concomitant]
  3. GLIPIZIDE [Concomitant]
  4. METFORMIN [Concomitant]

REACTIONS (1)
  - HEPATIC FAILURE [None]
